FAERS Safety Report 9298656 (Version 1)
Quarter: 2013Q1

REPORT INFORMATION
  Report Type: Spontaneous
  Country: US (occurrence: None)
  Receive Date: 20121227
  Receipt Date: 20121227
  Transmission Date: 20140127
  Serious: Yes (Other)
  Sender: FDA-Public Use
  Company Number: PHEH2012US021860

PATIENT
  Sex: Female
  Weight: 81.6 kg

DRUGS (8)
  1. AFINITOR [Suspect]
     Route: 048
  2. CIPRO [Suspect]
  3. AVIL (PHENIRAMINE AMINOSALICYLATE) [Concomitant]
  4. OXYCODONE (OXYCODONE) [Concomitant]
  5. IBUPROFEN (IBUPROFEN) [Concomitant]
  6. OMEPRAZOLE (OMEPRAZOLE) [Concomitant]
  7. EXEMESTANE (EXEMESTANE) [Concomitant]
  8. AMOXICILLIN (AMOXICILLIN) [Concomitant]

REACTIONS (2)
  - Folliculitis [None]
  - Urinary tract infection [None]
